FAERS Safety Report 16133847 (Version 1)
Quarter: 2019Q1

REPORT INFORMATION
  Report Type: Report from Study
  Country: CA (occurrence: CA)
  Receive Date: 20190329
  Receipt Date: 20190329
  Transmission Date: 20190418
  Serious: Yes (Life-Threatening, Hospitalization)
  Sender: FDA-Public Use
  Company Number: CA-TOLMAR, INC.-2019CA003085

PATIENT

DRUGS (1)
  1. ELIGARD [Suspect]
     Active Substance: LEUPROLIDE ACETATE
     Indication: PROSTATE CANCER
     Dosage: 45 MG, EVERY 6 MONTHS
     Route: 058
     Dates: start: 20160406

REACTIONS (5)
  - Lung neoplasm malignant [Not Recovered/Not Resolved]
  - Urinary retention [Not Recovered/Not Resolved]
  - Ulcer [Not Recovered/Not Resolved]
  - Haematochezia [Not Recovered/Not Resolved]
  - Escherichia infection [Not Recovered/Not Resolved]

NARRATIVE: CASE EVENT DATE: 2018
